FAERS Safety Report 4286171-9 (Version None)
Quarter: 2004Q1

REPORT INFORMATION
  Report Type: 
  Country: None (occurrence: None)
  Receive Date: 20040205
  Receipt Date: 20031209
  Transmission Date: 20041129
  Serious: Yes (Hospitalization)
  Sender: FDA-Public Use
  Company Number: PHHO2003JP15929

PATIENT
  Age: 84 Year
  Sex: Male

DRUGS (4)
  1. DIOVAN [Suspect]
     Indication: ESSENTIAL HYPERTENSION
     Dosage: 80 MG, UNK
     Route: 048
     Dates: start: 20021217, end: 20030126
  2. CARVEDILOL [Suspect]
     Indication: ESSENTIAL HYPERTENSION
     Dosage: 10 MG, UNK
     Route: 048
     Dates: start: 20030107, end: 20030126
  3. BUFFERIN [Concomitant]
     Dosage: 81 MG, UNK
     Route: 048
     Dates: start: 20020723
  4. NITROGLYCERIN [Concomitant]
     Dosage: 27 MG, UNK
     Route: 062
     Dates: start: 20020723

REACTIONS (1)
  - TRANSIENT ISCHAEMIC ATTACK [None]
